FAERS Safety Report 19493184 (Version 2)
Quarter: 2021Q3

REPORT INFORMATION
  Report Type: Spontaneous
  Country: US (occurrence: US)
  Receive Date: 20210705
  Receipt Date: 20210712
  Transmission Date: 20211014
  Serious: No
  Sender: FDA-Public Use
  Company Number: US-AMGEN-USASP2021100034

PATIENT
  Age: 73 Year
  Sex: Male
  Weight: 89.34 kg

DRUGS (19)
  1. REPATHA [Suspect]
     Active Substance: EVOLOCUMAB
     Dosage: UNK
     Route: 058
  2. CHOLECALCIFEROL [Concomitant]
     Active Substance: CHOLECALCIFEROL
     Dosage: 1250 MICROGRAM, QWK
     Route: 065
  3. REPATHA [Suspect]
     Active Substance: EVOLOCUMAB
     Indication: HYPERLIPIDAEMIA
     Dosage: UNK
     Route: 058
     Dates: start: 20201202
  4. ALCOHOL PREP PADS [Concomitant]
     Active Substance: ISOPROPYL ALCOHOL
     Dosage: UNK UNK, QD
  5. CLOPIDOGREL [Concomitant]
     Active Substance: CLOPIDOGREL BISULFATE
     Dosage: 75 MILLIGRAM, QD
     Route: 048
  6. GLIMEPIRIDE. [Concomitant]
     Active Substance: GLIMEPIRIDE
     Dosage: 2 MILLIGRAM, QD
     Route: 048
  7. TYLENOL [Concomitant]
     Active Substance: ACETAMINOPHEN
     Dosage: 500 MILLIGRAM
     Route: 048
  8. VENTOLIN HFA [Concomitant]
     Active Substance: ALBUTEROL SULFATE
     Dosage: 90 MICROGRAM
  9. PANTOPRAZOLE [Concomitant]
     Active Substance: PANTOPRAZOLE
     Dosage: 20 MILLIGRAM, QD
     Route: 048
  10. AMLODIPINE [Concomitant]
     Active Substance: AMLODIPINE BESYLATE
     Dosage: 2.5 MILLIGRAM, QD
     Route: 048
  11. SYNJARDY XR [Concomitant]
     Active Substance: EMPAGLIFLOZIN\METFORMIN HYDROCHLORIDE
     Dosage: 10000 MILLIGRAM, QD
  12. ESCITALOPRAM [Concomitant]
     Active Substance: ESCITALOPRAM OXALATE
     Dosage: 10 MILLIGRAM, QD
     Route: 048
  13. CHOLECALCIFEROL [Concomitant]
     Active Substance: CHOLECALCIFEROL
     Dosage: 125 MICROGRAM, QD
     Route: 048
  14. ICOSAPENT ETHYL [Concomitant]
     Active Substance: ICOSAPENT ETHYL
     Dosage: 1 GRAM, BID
     Route: 048
  15. SYNJARDY XR [Concomitant]
     Active Substance: EMPAGLIFLOZIN\METFORMIN HYDROCHLORIDE
     Dosage: 10 MILLIGRAM
  16. TOUJEO [Concomitant]
     Active Substance: INSULIN GLARGINE
     Dosage: 60 INTERNATIONAL UNIT, QD
     Route: 058
  17. TDAP [Concomitant]
     Active Substance: TETANUS TOXOID, REDUCED DIPHTHERIA TOXOID AND ACELLULAR PERTUSSIS VACCINE ADSORBED, TDAP
     Dosage: UNK
     Dates: start: 20201229
  18. MONTELUKAST [Concomitant]
     Active Substance: MONTELUKAST SODIUM
     Dosage: 10 MILLIGRAM, QD
     Route: 048
  19. NITROGLYCERIN. [Concomitant]
     Active Substance: NITROGLYCERIN
     Dosage: 0.4 MILLIGRAM
     Route: 060

REACTIONS (1)
  - Device difficult to use [Unknown]

NARRATIVE: CASE EVENT DATE: 20210626
